FAERS Safety Report 9276778 (Version 2)
Quarter: 2013Q2

REPORT INFORMATION
  Report Type: Spontaneous
  Country: US (occurrence: None)
  Receive Date: 20130501
  Receipt Date: 20130524
  Transmission Date: 20140414
  Serious: Yes (Hospitalization, Other)
  Sender: FDA-Public Use
  Company Number: JPI-P-031389

PATIENT
  Age: 48 Year
  Sex: Female

DRUGS (12)
  1. XYREM (500 MILLIGRAM/MILLILITERS, SOLUTION) (SODIUM OXYBATE) [Suspect]
     Indication: CATAPLEXY
     Dosage: 9 GM (4.5 GM, 2 IN 1 D)
     Route: 048
     Dates: start: 20041025
  2. VANCOMYCIN [Suspect]
     Dosage: UNKNOWN
  3. OXYCONTIN [Concomitant]
  4. CLONAZEPAM [Concomitant]
  5. BUTALBITAL, ACETAMINOPHEN AND CAFFEINE [Concomitant]
  6. DULOXETINE HYDROCHLORIDE [Concomitant]
  7. LISDEXAMFETAMINE DIMESYLATE [Concomitant]
  8. NAPROXEN [Concomitant]
  9. ACETYLSALICILIC ACID [Concomitant]
  10. LAMOTRIGINE [Concomitant]
  11. AMITRIPTYLINE [Concomitant]
  12. VITAMINS [Concomitant]

REACTIONS (11)
  - Pyrexia [None]
  - Lymphadenopathy [None]
  - Submandibular mass [None]
  - Sepsis [None]
  - Blood pressure decreased [None]
  - Drug hypersensitivity [None]
  - Weight increased [None]
  - Mitral valve prolapse [None]
  - Mitral valve incompetence [None]
  - Fall [None]
  - Muscle atrophy [None]
